FAERS Safety Report 9001030 (Version 3)
Quarter: 2013Q2

REPORT INFORMATION
  Report Type: Report from Study
  Country: US (occurrence: US)
  Receive Date: 20130107
  Receipt Date: 20130412
  Transmission Date: 20140414
  Serious: No
  Sender: FDA-Public Use
  Company Number: US-VERTEX PHARMACEUTICALS INC.-2013-000161

PATIENT
  Age: 58 Year
  Sex: Male
  Weight: 97 kg

DRUGS (5)
  1. VX-950 (TELAPREVIR) [Suspect]
     Indication: HEPATITIS B
     Dosage: 750 MG, TID
     Route: 048
     Dates: start: 2012, end: 20121220
  2. RIBAPAK [Suspect]
     Indication: HEPATITIS B
     Dosage: 600 MG, BID
     Route: 048
     Dates: start: 2012, end: 201302
  3. PEGASYS [Suspect]
     Indication: HEPATITIS B
     Dosage: QW
     Route: 058
     Dates: start: 2012, end: 201302
  4. AMLODIPINE [Concomitant]
     Dosage: 5 MG, QD
     Route: 048
  5. GEMFIBROZIL [Concomitant]
     Dosage: 600 MG, BID
     Route: 048

REACTIONS (3)
  - Off label use [Unknown]
  - Lower respiratory tract infection [Unknown]
  - Pulmonary congestion [Unknown]
